FAERS Safety Report 12393181 (Version 1)
Quarter: 2016Q2

REPORT INFORMATION
  Report Type: Spontaneous
  Country: US (occurrence: None)
  Receive Date: 20160520
  Receipt Date: 20160520
  Transmission Date: 20160815
  Serious: No
  Sender: FDA-Public Use
  Company Number: None

PATIENT
  Age: 35 Year
  Sex: Female
  Weight: 48.99 kg

DRUGS (10)
  1. INVEGA SUSTENNA [Suspect]
     Active Substance: PALIPERIDONE PALMITATE
     Indication: ANXIETY DISORDER
     Dosage: 234MG/1.5 INJECTION/INTRAMUSCULAR ONE SHOT ONCE A MONTH (FIRST DOSE GIVEN)
     Route: 030
     Dates: start: 20151103
  2. INVEGA SUSTENNA [Suspect]
     Active Substance: PALIPERIDONE PALMITATE
     Indication: POST-TRAUMATIC STRESS DISORDER
     Dosage: 234MG/1.5 INJECTION/INTRAMUSCULAR ONE SHOT ONCE A MONTH (FIRST DOSE GIVEN)
     Route: 030
     Dates: start: 20151103
  3. VIT. B COMPLEX [Concomitant]
  4. VITAMIN C [Concomitant]
     Active Substance: ASCORBIC ACID
  5. INVEGA SUSTENNA [Suspect]
     Active Substance: PALIPERIDONE PALMITATE
     Indication: OBSESSIVE-COMPULSIVE DISORDER
     Dosage: 234MG/1.5 INJECTION/INTRAMUSCULAR ONE SHOT ONCE A MONTH (FIRST DOSE GIVEN)
     Route: 030
     Dates: start: 20151103
  6. CLOMIPRAMINE [Concomitant]
     Active Substance: CLOMIPRAMINE
  7. VIT. D [Concomitant]
  8. MULTIVITAMIN [Concomitant]
     Active Substance: VITAMINS
  9. HERBAL LAXATIVE [Concomitant]
  10. INVEGA SUSTENNA [Suspect]
     Active Substance: PALIPERIDONE PALMITATE
     Indication: AUTISM SPECTRUM DISORDER
     Dosage: 234MG/1.5 INJECTION/INTRAMUSCULAR ONE SHOT ONCE A MONTH (FIRST DOSE GIVEN)
     Route: 030
     Dates: start: 20151103

REACTIONS (4)
  - Tremor [None]
  - Musculoskeletal stiffness [None]
  - Muscular weakness [None]
  - Restlessness [None]

NARRATIVE: CASE EVENT DATE: 201511
